FAERS Safety Report 15302453 (Version 2)
Quarter: 2018Q3

REPORT INFORMATION
  Report Type: Spontaneous
  Country: DE (occurrence: DE)
  Receive Date: 20180821
  Receipt Date: 20180828
  Transmission Date: 20181010
  Serious: Yes (Death, Life-Threatening, Hospitalization, Other)
  Sender: FDA-Public Use
  Company Number: DE-GILEAD-2018-0357760

PATIENT
  Age: 74 Year
  Sex: Male
  Weight: 80 kg

DRUGS (2)
  1. VEMLIDY [Suspect]
     Active Substance: TENOFOVIR ALAFENAMIDE FUMARATE
     Indication: CHRONIC HEPATITIS B
     Dosage: 25 MG, QD
     Route: 048
     Dates: start: 20180711, end: 20180802
  2. TENOFOVIR DISOPROXIL FUMARATE. [Concomitant]
     Active Substance: TENOFOVIR DISOPROXIL FUMARATE
     Indication: CHRONIC HEPATITIS B
     Dosage: 245 MG, QD
     Route: 048
     Dates: start: 20180629, end: 20180711

REACTIONS (7)
  - Cardio-respiratory arrest [Fatal]
  - Gait disturbance [Unknown]
  - Blood creatine phosphokinase increased [Unknown]
  - Rhabdomyolysis [Fatal]
  - Paresis [Unknown]
  - Myopathy toxic [Unknown]
  - Transaminases increased [Unknown]

NARRATIVE: CASE EVENT DATE: 2018
